FAERS Safety Report 9853323 (Version 1)
Quarter: 2014Q1

REPORT INFORMATION
  Report Type: Report from Study
  Country: DE (occurrence: DE)
  Receive Date: 20140129
  Receipt Date: 20140129
  Transmission Date: 20141002
  Serious: Yes (Other)
  Sender: FDA-Public Use
  Company Number: DE-SA-2014SA007024

PATIENT
  Age: 52 Year
  Sex: Female

DRUGS (1)
  1. LEMTRADA [Suspect]
     Indication: MULTIPLE SCLEROSIS
     Route: 041
     Dates: start: 20131125, end: 20131130

REACTIONS (1)
  - Multiple sclerosis [Not Recovered/Not Resolved]
